FAERS Safety Report 17680350 (Version 10)
Quarter: 2021Q1

REPORT INFORMATION
  Report Type: Report from Study
  Country: None (occurrence: KR)
  Receive Date: 20200417
  Receipt Date: 20210327
  Transmission Date: 20210419
  Serious: Yes (Death, Hospitalization, Other)
  Sender: FDA-Public Use
  Company Number: KR-ABBVIE-20K-090-3368918-00

PATIENT
  Age: 64 Year
  Sex: Female
  Weight: 51 kg

DRUGS (20)
  1. VENCLEXTA [Suspect]
     Active Substance: VENETOCLAX
     Indication: CHRONIC LYMPHOCYTIC LEUKAEMIA
     Route: 048
     Dates: start: 20200402, end: 20200408
  2. ZYLORIC [Concomitant]
     Active Substance: ALLOPURINOL
     Indication: PROPHYLAXIS
  3. URO VAXOM [Concomitant]
     Active Substance: ESCHERICHIA COLI
     Indication: URETEROLITHIASIS
  4. LYRICA [Concomitant]
     Active Substance: PREGABALIN
     Indication: NEUROPATHY PERIPHERAL
  5. SOLONDO [Concomitant]
     Active Substance: PREDNISOLONE
     Indication: ARTERITIS
  6. ASPIRIN. [Concomitant]
     Active Substance: ASPIRIN
     Indication: ATRIAL FIBRILLATION
  7. DURICEF [Concomitant]
     Active Substance: CEFADROXIL
     Indication: URETEROLITHIASIS
  8. AMPHOJEL [Concomitant]
     Active Substance: ALUMINUM HYDROXIDE
     Route: 048
     Dates: start: 20200409, end: 20200414
  9. BARACLUDE [Concomitant]
     Active Substance: ENTECAVIR
     Indication: HEPATITIS B
  10. BETMIGA [Concomitant]
     Active Substance: MIRABEGRON
     Indication: URETEROLITHIASIS
  11. VESICARE [Concomitant]
     Active Substance: SOLIFENACIN SUCCINATE
     Indication: URETEROLITHIASIS
  12. IRCODON [Concomitant]
     Active Substance: OXYCODONE HYDROCHLORIDE
     Indication: ARTERITIS
  13. VENCLEXTA [Suspect]
     Active Substance: VENETOCLAX
     Route: 048
     Dates: start: 20200409, end: 20200414
  14. DIGOSIN [Concomitant]
     Active Substance: DIGOXIN
     Indication: ATRIAL FIBRILLATION
  15. PENIRAMIN [Concomitant]
     Indication: NEUROPATHY PERIPHERAL
  16. TARGIN [Concomitant]
     Active Substance: NALOXONE HYDROCHLORIDE\OXYCODONE HYDROCHLORIDE
     Indication: ARTERITIS
  17. NEURONTIN [Concomitant]
     Active Substance: GABAPENTIN
     Indication: NEUROPATHY PERIPHERAL
  18. SALAGEN [Concomitant]
     Active Substance: PILOCARPINE HYDROCHLORIDE
     Indication: PROPHYLAXIS
  19. AMPHOJEL [Concomitant]
     Active Substance: ALUMINUM HYDROXIDE
     Indication: PROPHYLAXIS AGAINST GASTROINTESTINAL ULCER
     Route: 048
     Dates: start: 20200402, end: 20200408
  20. CONBLOC [Concomitant]
     Indication: ATRIAL FIBRILLATION

REACTIONS (1)
  - Septic shock [Fatal]

NARRATIVE: CASE EVENT DATE: 20200414
